FAERS Safety Report 6071268-3 (Version None)
Quarter: 2009Q1

REPORT INFORMATION
  Report Type: 
  Country: None (occurrence: None)
  Receive Date: 20090204
  Receipt Date: 20090119
  Transmission Date: 20090719
  Serious: Yes (Hospitalization)
  Sender: FDA-Public Use
  Company Number: 2009S1000960

PATIENT
  Sex: Male

DRUGS (3)
  1. CLOZAPINE [Suspect]
     Indication: PSYCHOTIC DISORDER
     Dosage: 150 MG;DAILY
     Dates: start: 19950201, end: 19970101
  2. TRIFLUOPERAZINE (PREV.) [Concomitant]
  3. RISPERIDONE (PREV.) [Concomitant]

REACTIONS (3)
  - AGRANULOCYTOSIS [None]
  - OBSESSIVE-COMPULSIVE DISORDER [None]
  - TOURETTE'S DISORDER [None]
